FAERS Safety Report 7015716-0 (Version None)
Quarter: 2010Q3

REPORT INFORMATION
  Report Type: 
  Country: None (occurrence: None)
  Receive Date: 20100927
  Receipt Date: 20090213
  Transmission Date: 20110219
  Serious: No
  Sender: FDA-Public Use
  Company Number: US-ASTRAZENECA-2009UW04282

PATIENT
  Sex: Female
  Weight: 54.4 kg

DRUGS (5)
  1. ARIMIDEX [Suspect]
     Route: 048
  2. ACYCLOVIR SODIUM [Concomitant]
  3. HYDROCODONE [Concomitant]
  4. ZOVIRAX [Concomitant]
  5. MULTI-VITAMIN [Concomitant]

REACTIONS (2)
  - HERPES ZOSTER [None]
  - PAIN [None]
